FAERS Safety Report 11838275 (Version 1)
Quarter: 2015Q4

REPORT INFORMATION
  Report Type: Spontaneous
  Country: US (occurrence: US)
  Receive Date: 20151215
  Receipt Date: 20151215
  Transmission Date: 20160305
  Serious: No
  Sender: FDA-Public Use
  Company Number: US-NOVOPROD-447376

PATIENT
  Age: 74 Year
  Sex: Female
  Weight: 72.56 kg

DRUGS (5)
  1. NOVOLIN 70/30 [Suspect]
     Active Substance: INSULIN HUMAN
     Indication: TYPE 2 DIABETES MELLITUS
     Dosage: 25 U, TID
     Route: 058
  2. DIAZEPAM. [Concomitant]
     Active Substance: DIAZEPAM
     Indication: MUSCLE SPASMS
     Dosage: 5 MG, QD IN PM
     Route: 048
  3. NOVOLIN 70/30 [Suspect]
     Active Substance: INSULIN HUMAN
     Dosage: 25 U, TID
     Route: 058
  4. NOVOLIN R [Concomitant]
     Active Substance: INSULIN HUMAN
     Indication: TYPE 2 DIABETES MELLITUS
     Dosage: SLIDING SCALE IF BLOOD SUGARS ARE GREATER THAN 300 MG/DL
     Route: 058
  5. OMEPRAZOLE. [Concomitant]
     Active Substance: OMEPRAZOLE
     Indication: GASTROOESOPHAGEAL REFLUX DISEASE
     Dosage: 40 MG, QD
     Route: 048

REACTIONS (3)
  - Fall [Recovering/Resolving]
  - Blood glucose increased [Recovered/Resolved]
  - Product deposit [Recovered/Resolved]

NARRATIVE: CASE EVENT DATE: 201502
